FAERS Safety Report 8450968-1 (Version None)
Quarter: 2012Q2

REPORT INFORMATION
  Report Type: 
  Country: None (occurrence: None)
  Receive Date: 20120615
  Receipt Date: 20120615
  Transmission Date: 20120825
  Serious: No
  Sender: FDA-Public Use
  Company Number: None

PATIENT
  Sex: Female

DRUGS (1)
  1. ENBREL [Suspect]
     Indication: PSORIATIC ARTHROPATHY
     Dosage: 50MG QW SUBAQ
     Route: 058
     Dates: start: 20120420, end: 20120515

REACTIONS (2)
  - PRURITUS GENERALISED [None]
  - INJECTION SITE ERYTHEMA [None]
